FAERS Safety Report 8427868-6 (Version None)
Quarter: 2012Q2

REPORT INFORMATION
  Report Type: 
  Country: None (occurrence: None)
  Receive Date: 20120611
  Receipt Date: 20120606
  Transmission Date: 20120825
  Serious: Yes (Hospitalization)
  Sender: FDA-Public Use
  Company Number: US-GILEAD-2012-0053365

PATIENT
  Sex: Female

DRUGS (2)
  1. LETAIRIS [Suspect]
     Indication: PULMONARY HYPERTENSION
     Dosage: 10 MG, UNK
     Route: 048
     Dates: start: 20071017, end: 20120409
  2. LETAIRIS [Suspect]
     Indication: HIV INFECTION

REACTIONS (4)
  - HAEMORRHAGE [None]
  - VOMITING [None]
  - INTESTINAL HAEMORRHAGE [None]
  - FLUID RETENTION [None]
